FAERS Safety Report 6096600-6 (Version None)
Quarter: 2009Q1

REPORT INFORMATION
  Report Type: 
  Country: None (occurrence: None)
  Receive Date: 20090227
  Receipt Date: 20090219
  Transmission Date: 20090719
  Serious: Yes (Hospitalization, Other)
  Sender: FDA-Public Use
  Company Number: CA-BAYER-200913703NA

PATIENT

DRUGS (1)
  1. ADALAT CC [Suspect]
     Indication: DRUG USE FOR UNKNOWN INDICATION

REACTIONS (4)
  - CELLULITIS [None]
  - INTESTINAL ISCHAEMIA [None]
  - OEDEMA PERIPHERAL [None]
  - RASH [None]
